FAERS Safety Report 8935338 (Version 1)
Quarter: 2012Q4

REPORT INFORMATION
  Report Type: Spontaneous
  Country: US (occurrence: None)
  Receive Date: 20121127
  Receipt Date: 20121127
  Transmission Date: 20130627
  Serious: Yes (Other)
  Sender: FDA-Public Use
  Company Number: None

PATIENT
  Age: 44 Year
  Sex: Female
  Weight: 87.6 kg

DRUGS (1)
  1. GENERIC DEPAKOTE [Suspect]
     Indication: BIPOLAR DISORDER
     Route: 048

REACTIONS (1)
  - Pruritus [None]
